FAERS Safety Report 21624469 (Version 2)
Quarter: 2023Q1

REPORT INFORMATION
  Report Type: Spontaneous
  Country: US (occurrence: US)
  Receive Date: 20221121
  Receipt Date: 20230302
  Transmission Date: 20230417
  Serious: Yes (Hospitalization, Other)
  Sender: FDA-Public Use
  Company Number: US-CELGENE-USA-20210904795

PATIENT
  Age: 64 Year
  Sex: Female

DRUGS (1)
  1. ABECMA [Suspect]
     Active Substance: IDECABTAGENE VICLEUCEL
     Indication: Plasma cell myeloma
     Dosage: FREQUENCY TEXT: SINGLE?382.66 X 10^6 CELLS
     Route: 042

REACTIONS (4)
  - Pancytopenia [Recovered/Resolved]
  - Osteomyelitis [Unknown]
  - Pseudomonal bacteraemia [Unknown]
  - Cytokine release syndrome [Unknown]
